FAERS Safety Report 8966497 (Version 1)
Quarter: 2012Q4

REPORT INFORMATION
  Report Type: Report from Study
  Country: CA (occurrence: CA)
  Receive Date: 20121214
  Receipt Date: 20121214
  Transmission Date: 20130627
  Serious: Yes (Hospitalization)
  Sender: FDA-Public Use
  Company Number: CA-ABBOTT-12P-028-1020244-00

PATIENT
  Sex: Female
  Weight: 71.4 kg

DRUGS (8)
  1. HUMIRA [Suspect]
     Indication: RHEUMATOID ARTHRITIS
     Route: 058
     Dates: start: 20120128
  2. BISOPROLOL SANDOZ [Concomitant]
     Indication: PRODUCT USED FOR UNKNOWN INDICATION
     Route: 048
  3. ELTROXIN [Concomitant]
     Indication: THYROID DISORDER
     Route: 048
  4. RABEPRAZOLE [Concomitant]
     Indication: PRODUCT USED FOR UNKNOWN INDICATION
     Route: 048
  5. IRBESARTAN TEVA [Concomitant]
     Indication: PRODUCT USED FOR UNKNOWN INDICATION
     Route: 048
  6. APOCOXEPIN [Concomitant]
     Indication: INSOMNIA
     Route: 048
  7. MORPHINE [Concomitant]
     Indication: PAIN
     Route: 048
  8. RISEDRONATE TEVA [Concomitant]
     Indication: MINERAL SUPPLEMENTATION
     Dosage: Weekly
     Route: 048

REACTIONS (4)
  - Anxiety [Recovering/Resolving]
  - Diarrhoea [Recovering/Resolving]
  - Enteritis [Recovering/Resolving]
  - Colitis microscopic [Recovering/Resolving]
